FAERS Safety Report 7032329-5 (Version None)
Quarter: 2010Q4

REPORT INFORMATION
  Report Type: 
  Country: None (occurrence: None)
  Receive Date: 20101007
  Receipt Date: 20100629
  Transmission Date: 20110411
  Serious: Yes (Life-Threatening)
  Sender: FDA-Public Use
  Company Number: GB-BRISTOL-MYERS SQUIBB COMPANY-15173917

PATIENT
  Age: 61 Year
  Sex: Male
  Weight: 73 kg

DRUGS (7)
  1. CETUXIMAB [Suspect]
     Indication: COLORECTAL CANCER
     Dosage: 5 MG/ML
     Route: 042
     Dates: start: 20091002, end: 20100518
  2. OXALIPLATIN [Suspect]
     Indication: COLORECTAL CANCER
     Route: 042
     Dates: start: 20091002, end: 20100511
  3. FLUOROURACIL [Suspect]
     Indication: COLORECTAL CANCER
     Dosage: ALSO 4600 MG GIVEN IV FROM 2OCT09 - 11MAY10
     Route: 040
     Dates: start: 20091002, end: 20100511
  4. DOXYCYCLINE [Concomitant]
     Route: 048
     Dates: start: 20100409, end: 20100501
  5. SELENIUM [Concomitant]
     Route: 048
     Dates: end: 20100501
  6. GARLIC [Concomitant]
     Dosage: CAPS
     Route: 048
     Dates: end: 20100501
  7. RETINOL [Concomitant]
     Dosage: RETINOL A
     Dates: end: 20100501

REACTIONS (3)
  - ASPARTATE AMINOTRANSFERASE INCREASED [None]
  - HYPERBILIRUBINAEMIA [None]
  - LIVER FUNCTION TEST ABNORMAL [None]
